FAERS Safety Report 14150530 (Version 2)
Quarter: 2018Q1

REPORT INFORMATION
  Report Type: Spontaneous
  Country: US (occurrence: US)
  Receive Date: 20171101
  Receipt Date: 20180105
  Transmission Date: 20180508
  Serious: Yes (Other)
  Sender: FDA-Public Use
  Company Number: US-JAZZ-2017-US-013522

PATIENT
  Age: 12 Year
  Sex: Female

DRUGS (15)
  1. MICAFUNGIN [Concomitant]
     Active Substance: MICAFUNGIN
     Indication: PROPHYLAXIS
     Dosage: 50 MG, QD
     Route: 042
  2. TPN [Concomitant]
     Active Substance: AMINO ACIDS\DEXTROSE\ELECTROLYTES NOS\SOYBEAN OIL
     Indication: NUTRITIONAL SUPPLEMENTATION
     Dosage: UNK
     Dates: start: 20171009
  3. METHYLPREDNISOLONE. [Concomitant]
     Active Substance: METHYLPREDNISOLONE
     Indication: ENCEPHALOPATHY
     Dosage: 60 MG, UNK WEANED OVER TIME
     Route: 042
     Dates: start: 20171006, end: 20171027
  4. NIFEDIPINE. [Concomitant]
     Active Substance: NIFEDIPINE
     Indication: HYPERTENSION
     Dosage: 14 MG, UNK
     Route: 048
     Dates: start: 20171012
  5. DIPHENHYDRAMINE/MAALOX/NYSTATIN [Concomitant]
     Indication: MUCOSAL INFLAMMATION
     Dosage: 5 ML, S/SWALLOW Q4H
     Route: 048
  6. PANTOPRAZOLE [Concomitant]
     Active Substance: PANTOPRAZOLE
     Indication: GASTRITIS
     Dosage: 40 MG, QD
     Route: 042
     Dates: start: 20171005, end: 20171029
  7. ACYCLOVIR                          /00587301/ [Concomitant]
     Active Substance: ACYCLOVIR
     Indication: PROPHYLAXIS
     Dosage: 400 MG, TID
     Dates: start: 20170929
  8. DEFITELIO [Suspect]
     Active Substance: DEFIBROTIDE SODIUM
     Indication: VENOOCCLUSIVE DISEASE
     Dosage: 340MG, Q6H
     Route: 042
     Dates: start: 20171012, end: 20171013
  9. FUROSEMIDE. [Concomitant]
     Active Substance: FUROSEMIDE
     Indication: FLUID BALANCE ASSESSMENT
     Dosage: 15-20 MG Q8H
     Route: 042
     Dates: start: 20171012
  10. MEROPENEM. [Concomitant]
     Active Substance: MEROPENEM
     Indication: INFECTION
     Dosage: 1000 MG, Q8H
     Route: 042
     Dates: start: 20171015, end: 20171024
  11. MICAFUNGIN [Concomitant]
     Active Substance: MICAFUNGIN
     Indication: URINARY TRACT INFECTION
     Dosage: 150 MG, QD
     Route: 042
     Dates: start: 20171004, end: 20171030
  12. BIOTENE                            /03475601/ [Concomitant]
     Indication: PROPHYLAXIS
     Dosage: 5 ML, S/SPIT BID
     Route: 048
     Dates: start: 20170919
  13. HYDROMORPHONE [Concomitant]
     Active Substance: HYDROMORPHONE
     Indication: PAIN
     Dosage: 0.2 MG, HOUR
     Route: 042
     Dates: start: 20171011, end: 20171031
  14. VASOPRESSIN. [Concomitant]
     Active Substance: VASOPRESSIN
     Indication: DIABETES INSIPIDUS
     Dosage: MUNIT/KG/HR
     Route: 042
     Dates: start: 20171010, end: 20171025
  15. HYDRALAZINE [Concomitant]
     Active Substance: HYDRALAZINE HYDROCHLORIDE
     Indication: HYPERTENSION
     Dosage: 8.2 MG, Q4H PRN
     Route: 042
     Dates: start: 20171012, end: 20171016

REACTIONS (1)
  - Hypotension [Recovered/Resolved]

NARRATIVE: CASE EVENT DATE: 20171013
